FAERS Safety Report 21893112 (Version 1)
Quarter: 2023Q1

REPORT INFORMATION
  Report Type: Spontaneous
  Country: CA (occurrence: CA)
  Receive Date: 20230121
  Receipt Date: 20230121
  Transmission Date: 20230417
  Serious: Yes (Other)
  Sender: FDA-Public Use
  Company Number: CA-CELLTRION INC.-2022CA010347

PATIENT

DRUGS (14)
  1. INFLECTRA [Suspect]
     Active Substance: INFLIXIMAB-DYYB
     Indication: Crohn^s disease
     Dosage: AT 0, 2 AND 6 WEEKS THEN Q 8 WEEKS
     Route: 042
     Dates: start: 20190319, end: 20190628
  2. INFLECTRA [Suspect]
     Active Substance: INFLIXIMAB-DYYB
     Dosage: EVERY 8 WEEKS
     Route: 042
     Dates: start: 20190823, end: 20191221
  3. INFLECTRA [Suspect]
     Active Substance: INFLIXIMAB-DYYB
     Dosage: EVERY 8 WEEKS
     Route: 042
     Dates: start: 20200311, end: 20200828
  4. INFLECTRA [Suspect]
     Active Substance: INFLIXIMAB-DYYB
     Dosage: EVERY 4 WEEKS
     Route: 042
     Dates: start: 20200925, end: 20220510
  5. INFLECTRA [Suspect]
     Active Substance: INFLIXIMAB-DYYB
     Dosage: EVERY 4 WEEKS
     Route: 042
     Dates: start: 20220414
  6. INFLECTRA [Suspect]
     Active Substance: INFLIXIMAB-DYYB
     Dosage: EVERY 4 WEEKS
     Route: 042
     Dates: start: 20220510
  7. INFLECTRA [Suspect]
     Active Substance: INFLIXIMAB-DYYB
     Dosage: EVERY 6 WEEKS
     Route: 042
     Dates: start: 20220622, end: 20221206
  8. INFLECTRA [Suspect]
     Active Substance: INFLIXIMAB-DYYB
     Dosage: EVERY 6 WEEKS
     Route: 042
     Dates: start: 20220804
  9. INFLECTRA [Suspect]
     Active Substance: INFLIXIMAB-DYYB
     Dosage: EVERY 6 WEEKS
     Route: 042
     Dates: start: 20221025
  10. INFLECTRA [Suspect]
     Active Substance: INFLIXIMAB-DYYB
     Dosage: EVERY 6 WEEKS
     Route: 042
     Dates: start: 20221206
  11. INFLECTRA [Suspect]
     Active Substance: INFLIXIMAB-DYYB
     Dosage: EVERY 5 WEEKS
     Dates: start: 20230111
  12. ABILIFY [Concomitant]
     Active Substance: ARIPIPRAZOLE
     Dosage: UNK
  13. ABILIFY [Concomitant]
     Active Substance: ARIPIPRAZOLE
     Dosage: 1 DF
  14. IMURAN [Concomitant]
     Active Substance: AZATHIOPRINE
     Dosage: 1 DF,UNKNOWN DOSE
     Route: 065
     Dates: start: 20190314

REACTIONS (4)
  - Hallucination, auditory [Not Recovered/Not Resolved]
  - Drug level decreased [Not Recovered/Not Resolved]
  - Off label use [Unknown]
  - Drug level above therapeutic [Not Recovered/Not Resolved]

NARRATIVE: CASE EVENT DATE: 20220101
